FAERS Safety Report 20452362 (Version 1)
Quarter: 2022Q1

REPORT INFORMATION
  Report Type: Spontaneous
  Country: BR (occurrence: BR)
  Receive Date: 20220210
  Receipt Date: 20220210
  Transmission Date: 20220423
  Serious: Yes (Other)
  Sender: FDA-Public Use
  Company Number: BR-ABBVIE-22K-020-4272802-00

PATIENT
  Sex: Female

DRUGS (1)
  1. HUMIRA [Suspect]
     Active Substance: ADALIMUMAB
     Indication: Psoriasis
     Dosage: 40MG/0.4ML
     Route: 058
     Dates: end: 202201

REACTIONS (3)
  - Suicidal ideation [Unknown]
  - Psoriasis [Unknown]
  - Feeling of despair [Unknown]

NARRATIVE: CASE EVENT DATE: 20220201
